FAERS Safety Report 12072457 (Version 1)
Quarter: 2016Q1

REPORT INFORMATION
  Report Type: Spontaneous
  Country: US (occurrence: US)
  Receive Date: 20160212
  Receipt Date: 20160212
  Transmission Date: 20160526
  Serious: No
  Sender: FDA-Public Use
  Company Number: US-ENDO PHARMACEUTICALS INC.-2016-000673

PATIENT
  Age: 60 Year
  Sex: Male
  Weight: 83.99 kg

DRUGS (6)
  1. FLOMAX [Suspect]
     Active Substance: TAMSULOSIN HYDROCHLORIDE
     Indication: PROSTATOMEGALY
     Route: 048
     Dates: start: 2015, end: 201601
  2. FLOMAX [Suspect]
     Active Substance: TAMSULOSIN HYDROCHLORIDE
     Route: 048
     Dates: start: 201601, end: 20160123
  3. CENTRUM MULTIVITAMIN [Concomitant]
     Indication: SUPPLEMENTATION THERAPY
  4. XIAFLEX [Suspect]
     Active Substance: COLLAGENASE CLOSTRIDIUM HISTOLYTICUM
     Indication: PEYRONIE^S DISEASE
     Route: 065
     Dates: start: 201512, end: 201512
  5. XIAFLEX [Suspect]
     Active Substance: COLLAGENASE CLOSTRIDIUM HISTOLYTICUM
     Route: 065
     Dates: start: 20160115, end: 20160115
  6. PROZAC [Concomitant]
     Active Substance: FLUOXETINE HYDROCHLORIDE
     Indication: ANXIETY

REACTIONS (7)
  - Incorrect drug administration duration [Not Recovered/Not Resolved]
  - Nasal congestion [Unknown]
  - Bronchial irritation [Recovering/Resolving]
  - Condition aggravated [Unknown]
  - Nasopharyngitis [Recovered/Resolved]
  - Prostatomegaly [Unknown]
  - Cough [Recovering/Resolving]

NARRATIVE: CASE EVENT DATE: 201512
